FAERS Safety Report 15282603 (Version 4)
Quarter: 2019Q2

REPORT INFORMATION
  Report Type: Report from Study
  Country: US (occurrence: US)
  Receive Date: 20180816
  Receipt Date: 20190416
  Transmission Date: 20190711
  Serious: No
  Sender: FDA-Public Use
  Company Number: PHEH2018US033355

PATIENT
  Age: 26 Year
  Sex: Female
  Weight: 62.59 kg

DRUGS (1)
  1. COSENTYX [Suspect]
     Active Substance: SECUKINUMAB
     Indication: PSORIASIS
     Dosage: 300 MG, QMO
     Route: 058
     Dates: start: 20180310

REACTIONS (4)
  - Skin irritation [Unknown]
  - Infectious mononucleosis [Recovered/Resolved]
  - Wrong technique in product usage process [Unknown]
  - Psoriasis [Unknown]

NARRATIVE: CASE EVENT DATE: 20180709
